FAERS Safety Report 22379613 (Version 1)
Quarter: 2023Q2

REPORT INFORMATION
  Report Type: Spontaneous
  Country: FR (occurrence: FR)
  Receive Date: 20230529
  Receipt Date: 20230529
  Transmission Date: 20230722
  Serious: Yes (Death, Hospitalization)
  Sender: FDA-Public Use
  Company Number: FR-INCYTE CORPORATION-2023IN003300

PATIENT
  Age: 73 Year
  Sex: Male
  Weight: 75 kg

DRUGS (8)
  1. IMBRUVICA [Suspect]
     Active Substance: IBRUTINIB
     Indication: Diffuse large B-cell lymphoma
     Dosage: UNK
     Route: 065
     Dates: start: 202205
  2. ATOVAQUONE [Concomitant]
     Active Substance: ATOVAQUONE
     Indication: Prophylaxis
  3. TAFASITAMAB [Suspect]
     Active Substance: TAFASITAMAB
     Indication: Diffuse large B-cell lymphoma
     Dosage: 880 MILLIGRAM, D1, D4, D8, D15, D22
     Route: 042
     Dates: start: 20220302, end: 20220525
  4. ENTRESTO [Concomitant]
     Active Substance: SACUBITRIL\VALSARTAN
     Indication: Renal failure
  5. SPIRONOLACTONE [Concomitant]
     Active Substance: SPIRONOLACTONE
     Indication: Renal failure
  6. BARACLUDE [Concomitant]
     Active Substance: ENTECAVIR
     Indication: Hepatitis B
  7. LENALIDOMIDE [Concomitant]
     Active Substance: LENALIDOMIDE
     Indication: Product used for unknown indication
     Dosage: 4TH LINE THERAPY WITH COMBINATION TAFASITAMAB
  8. VALACYCLOVIR [Concomitant]
     Active Substance: VALACYCLOVIR HYDROCHLORIDE
     Indication: Prophylaxis

REACTIONS (6)
  - Diffuse large B-cell lymphoma refractory [Fatal]
  - General physical health deterioration [Fatal]
  - Drug ineffective [Unknown]
  - Cardiac failure [Fatal]
  - Acute kidney injury [Fatal]
  - Disease progression [Fatal]

NARRATIVE: CASE EVENT DATE: 20220316
